FAERS Safety Report 10666225 (Version 3)
Quarter: 2015Q1

REPORT INFORMATION
  Report Type: Report from Study
  Country: US (occurrence: US)
  Receive Date: 20141219
  Receipt Date: 20150113
  Transmission Date: 20150720
  Serious: Yes (Hospitalization, Other)
  Sender: FDA-Public Use
  Company Number: US-GILEAD-2014-0127059

PATIENT
  Age: 76 Year
  Sex: Female

DRUGS (9)
  1. GALANTAMINE [Concomitant]
     Active Substance: GALANTAMINE
     Indication: MEMORY IMPAIRMENT
     Route: 048
  2. AMLODIPINE [Concomitant]
     Active Substance: AMLODIPINE BESYLATE
     Indication: HYPERTENSION
     Route: 048
  3. ROPINIROLE. [Concomitant]
     Active Substance: ROPINIROLE
     Indication: RESTLESS LEGS SYNDROME
     Dosage: UNK
     Route: 048
  4. GLIPIZIDE. [Concomitant]
     Active Substance: GLIPIZIDE
     Indication: DIABETES MELLITUS
     Route: 048
  5. NAPROXEN. [Concomitant]
     Active Substance: NAPROXEN
     Indication: ARTHRITIS
     Route: 048
  6. IDELALISIB [Suspect]
     Active Substance: IDELALISIB
     Indication: CHRONIC LYMPHOCYTIC LEUKAEMIA
     Dosage: 150 MG, UNK
     Route: 048
     Dates: start: 20141027
  7. AMBIEN [Concomitant]
     Active Substance: ZOLPIDEM TARTRATE
     Indication: INSOMNIA
     Route: 048
  8. BENAZEPRIL [Concomitant]
     Active Substance: BENAZEPRIL\BENAZEPRIL HYDROCHLORIDE
     Indication: HYPERTENSION
     Dosage: UNK
     Route: 048
  9. NEXIUM [Concomitant]
     Active Substance: ESOMEPRAZOLE MAGNESIUM
     Indication: GASTROOESOPHAGEAL REFLUX DISEASE
     Route: 048

REACTIONS (4)
  - Staphylococcal abscess [Unknown]
  - Lymphangitis [Unknown]
  - Hidradenitis [Unknown]
  - Cellulitis [Unknown]

NARRATIVE: CASE EVENT DATE: 20141105
